FAERS Safety Report 9336619 (Version 2)
Quarter: 2013Q4

REPORT INFORMATION
  Report Type: Report from Study
  Country: CA (occurrence: CA)
  Receive Date: 20130607
  Receipt Date: 20131018
  Transmission Date: 20140711
  Serious: Yes (Hospitalization, Other)
  Sender: FDA-Public Use
  Company Number: CA-JNJFOC-20130600980

PATIENT
  Age: 71 Year
  Sex: Female
  Weight: 61 kg

DRUGS (9)
  1. REMICADE [Suspect]
     Indication: RHEUMATOID ARTHRITIS
     Route: 042
     Dates: start: 2001
  2. METHOTREXATE [Concomitant]
     Dosage: 3 TABLETS
     Route: 048
  3. NAPROSYN [Concomitant]
     Route: 065
  4. ENTROPHEN [Concomitant]
     Route: 065
  5. NEXIUM [Concomitant]
     Route: 065
  6. FOLIC ACID [Concomitant]
     Route: 065
  7. ACLASTA [Concomitant]
     Route: 065
  8. BISOPROLOL [Concomitant]
     Route: 048
  9. NIFEDIPINE [Concomitant]
     Route: 065

REACTIONS (2)
  - Angina pectoris [Unknown]
  - Coronary artery occlusion [Unknown]
